FAERS Safety Report 5806429-9 (Version None)
Quarter: 2008Q3

REPORT INFORMATION
  Report Type: 
  Country: None (occurrence: None)
  Receive Date: 20080710
  Receipt Date: 20080701
  Transmission Date: 20090109
  Serious: Yes (Other)
  Sender: FDA-Public Use
  Company Number: US-ELI_LILLY_AND_COMPANY-US200806003822

PATIENT
  Age: 81 Year
  Sex: Female

DRUGS (5)
  1. EVISTA [Suspect]
     Indication: OSTEOPOROSIS
     Dosage: 60 MG, UNK
     Dates: start: 19980119
  2. FOSAMAX [Concomitant]
  3. METOPROLOL SUCCINATE [Concomitant]
     Dosage: 25 MG, UNK
  4. DILTIAZEM HCL [Concomitant]
  5. HYDROCHLOROTHIAZIDE [Concomitant]

REACTIONS (1)
  - BREAST CANCER [None]
